FAERS Safety Report 21766741 (Version 3)
Quarter: 2023Q1

REPORT INFORMATION
  Report Type: Spontaneous
  Country: US (occurrence: US)
  Receive Date: 20221222
  Receipt Date: 20230203
  Transmission Date: 20230417
  Serious: No
  Sender: FDA-Public Use
  Company Number: US-PFIZER INC-202201380704

PATIENT
  Age: 69 Year
  Sex: Female
  Weight: 50.8 kg

DRUGS (3)
  1. IBRANCE [Suspect]
     Active Substance: PALBOCICLIB
     Indication: Breast cancer metastatic
     Dosage: 21 DAYS IN A ROW, STOP, FOR 7 DAYS, START BACK FOR 21 DAYS; ONCE A DAY
  2. FASLODEX [Concomitant]
     Active Substance: FULVESTRANT
     Indication: Hormone replacement therapy
     Dosage: ONCE A MONTH
  3. ZOMETA [Concomitant]
     Active Substance: ZOLEDRONIC ACID
     Indication: Metastases to bone
     Dosage: INFUSION ONCE A MONTH
     Route: 042

REACTIONS (3)
  - Weight decreased [Unknown]
  - Product dispensing error [Unknown]
  - Product dose omission issue [Unknown]
